FAERS Safety Report 5996562-3 (Version None)
Quarter: 2008Q4

REPORT INFORMATION
  Report Type: 
  Country: None (occurrence: None)
  Receive Date: 20081212
  Receipt Date: 20081027
  Transmission Date: 20090506
  Serious: No
  Sender: FDA-Public Use
  Company Number: US-ABBOTT-08P-163-0482773-00

PATIENT
  Sex: Female

DRUGS (25)
  1. HUMIRA [Suspect]
     Indication: RHEUMATOID ARTHRITIS
     Route: 058
     Dates: start: 20081016
  2. PHENOBARBITAL TAB [Concomitant]
     Indication: DRUG USE FOR UNKNOWN INDICATION
     Dosage: 12 PILLS
     Route: 048
  3. GABAPENTIN [Concomitant]
     Indication: DRUG USE FOR UNKNOWN INDICATION
     Dosage: 9 PILLS
     Route: 048
  4. TRENTOL [Concomitant]
     Indication: CEREBROVASCULAR ACCIDENT
     Route: 048
  5. DISTROPAM [Concomitant]
     Indication: HYPERTONIC BLADDER
     Route: 048
  6. VIGRAN [Concomitant]
     Indication: DRUG USE FOR UNKNOWN INDICATION
     Route: 048
  7. TOCOPHERYL ACETATE [Concomitant]
     Indication: DRUG USE FOR UNKNOWN INDICATION
     Route: 048
  8. ACETYLSALICYLIC ACID SRT [Concomitant]
     Indication: DRUG USE FOR UNKNOWN INDICATION
     Route: 048
  9. ESTRADIOL [Concomitant]
     Indication: REPRODUCTIVE TRACT DISORDER
     Route: 048
  10. OMEPRAZOLE MAGNESIUM [Concomitant]
     Indication: GASTROOESOPHAGEAL REFLUX DISEASE
     Route: 048
  11. METFORMIN HCL [Concomitant]
     Indication: DIABETES MELLITUS
     Route: 048
  12. MIACALCIF SPRAY [Concomitant]
     Indication: DRUG USE FOR UNKNOWN INDICATION
     Route: 045
  13. CLOPIDOGREL [Concomitant]
     Indication: DRUG USE FOR UNKNOWN INDICATION
     Route: 048
  14. GLICLAZIDE [Concomitant]
     Indication: SEASONAL ALLERGY
     Route: 048
  15. GLUTAVAN [Concomitant]
     Indication: DIABETES MELLITUS
     Route: 048
  16. INSULIN GLARGINE [Concomitant]
     Indication: DIABETES MELLITUS
     Route: 050
  17. RAMIPRIL [Concomitant]
     Indication: DRUG USE FOR UNKNOWN INDICATION
  18. ROSUVASTATIN [Concomitant]
     Indication: DRUG USE FOR UNKNOWN INDICATION
  19. ERGOCALCIFEROL [Concomitant]
     Indication: DRUG USE FOR UNKNOWN INDICATION
  20. HYDROXYCHLOROQUINE SULFATE [Concomitant]
     Indication: DRUG USE FOR UNKNOWN INDICATION
     Dosage: 1.5 PILLS A DAY
     Route: 048
  21. MELOXICAM [Concomitant]
     Indication: DRUG USE FOR UNKNOWN INDICATION
     Route: 048
  22. PREDNISONE TAB [Concomitant]
     Indication: DRUG USE FOR UNKNOWN INDICATION
     Route: 048
  23. LEFLUNOMIDE [Concomitant]
     Indication: DRUG USE FOR UNKNOWN INDICATION
     Route: 048
  24. CALCIUM CARBONATE [Concomitant]
     Indication: DRUG USE FOR UNKNOWN INDICATION
     Route: 048
  25. ACETAMINOPHEN [Concomitant]
     Indication: ARTHRALGIA
     Route: 048

REACTIONS (2)
  - HERPES ZOSTER [None]
  - MUSCULOSKELETAL CHEST PAIN [None]
